FAERS Safety Report 6235441-3 (Version None)
Quarter: 2009Q2

REPORT INFORMATION
  Report Type: 
  Country: None (occurrence: None)
  Receive Date: 20090618
  Receipt Date: 20090323
  Transmission Date: 20091009
  Serious: No
  Sender: FDA-Public Use
  Company Number: US-ASTRAZENECA-2009UW07297

PATIENT
  Age: 29 Year
  Sex: Female
  Weight: 77.1 kg

DRUGS (4)
  1. RHINOCORT [Suspect]
     Indication: SINUS CONGESTION
     Dosage: 265 MCGS
     Route: 045
     Dates: start: 20090318, end: 20090323
  2. RHINOCORT [Suspect]
     Indication: SINUS OPERATION
     Dosage: 265 MCGS
     Route: 045
     Dates: start: 20090318, end: 20090323
  3. SINGULAIR [Concomitant]
     Indication: ASTHMA
  4. ZYRTEC [Concomitant]
     Indication: MULTIPLE ALLERGIES

REACTIONS (1)
  - POSTNASAL DRIP [None]
